FAERS Safety Report 20181757 (Version 1)
Quarter: 2021Q4

REPORT INFORMATION
  Report Type: Spontaneous
  Country: US (occurrence: None)
  Receive Date: 20211214
  Receipt Date: 20211214
  Transmission Date: 20220303
  Serious: Yes (Hospitalization)
  Sender: FDA-Public Use
  Company Number: None

PATIENT
  Sex: Male

DRUGS (1)
  1. VIGABATRIN [Suspect]
     Active Substance: VIGABATRIN
     Indication: Infantile spasms
     Dosage: FREQUENCY : DAILY;?
     Route: 048
     Dates: start: 20211116

REACTIONS (5)
  - Musculoskeletal stiffness [None]
  - Eye movement disorder [None]
  - Seizure [None]
  - Bradycardia [None]
  - Drug ineffective [None]

NARRATIVE: CASE EVENT DATE: 20211128
